FAERS Safety Report 9115192 (Version 1)
Quarter: 2013Q1

REPORT INFORMATION
  Report Type: Spontaneous
  Country: US (occurrence: None)
  Receive Date: 20130128
  Receipt Date: 20130128
  Transmission Date: 20140127
  Serious: Yes (Other)
  Sender: FDA-Public Use
  Company Number: FK201300135

PATIENT
  Age: 9 Year
  Sex: Female

DRUGS (4)
  1. MORPHINE (MANUFACTURER UNKNOWN) (MORPHINE) (MORPHINE) [Suspect]
     Indication: ARTHRALGIA
     Dosage: 2 MG, 1 IN 2 HR, INTRAVENOUS (NOT OTHERWISE SPECIFIED)?
     Route: 042
  2. HYDROMORPHONE (HYDROMORPHONE) [Suspect]
     Indication: BREAKTHROUGH PAIN
     Dosage: 0.2 MG, 0.2 MG/HOUR PATIENT CONTROLLED ANALGESIA, INTRAVENOUS (NOT OTHERWISE SPECIFIED)
     Route: 042
  3. FENTANYL (FENTANYL) [Suspect]
     Dosage: 30 UG, 30 MICROGRAM/ HR PATIENT CONTROLLED ANAL, INTRAVENOUS (NOT OTHERWISE SPECIFIED)
  4. KETOROLAC (KETOROLAC) [Concomitant]

REACTIONS (4)
  - Hyperaesthesia [None]
  - Agitation [None]
  - Tachycardia [None]
  - Hyperaesthesia [None]
